FAERS Safety Report 5084416-9 (Version None)
Quarter: 2006Q3

REPORT INFORMATION
  Report Type: 
  Country: None (occurrence: None)
  Receive Date: 20060821
  Receipt Date: 20060811
  Transmission Date: 20061208
  Serious: Yes (Life-Threatening)
  Sender: FDA-Public Use
  Company Number: US-GLAXOSMITHKLINE-A0616324A

PATIENT
  Age: 75 Year
  Sex: Female

DRUGS (5)
  1. FLOVENT [Suspect]
     Indication: EMPHYSEMA
     Route: 055
  2. SEREVENT [Suspect]
     Dates: end: 20050101
  3. SPIRIVA [Suspect]
     Indication: DRUG USE FOR UNKNOWN INDICATION
     Route: 065
     Dates: start: 20060101
  4. CENTRUM [Concomitant]
  5. FISH OIL [Concomitant]

REACTIONS (5)
  - ASTHENIA [None]
  - DRUG INEFFECTIVE [None]
  - DRUG INTERACTION [None]
  - DYSPNOEA [None]
  - FEELING JITTERY [None]
